FAERS Safety Report 18344136 (Version 1)
Quarter: 2020Q4

REPORT INFORMATION
  Report Type: Spontaneous
  Country: US (occurrence: US)
  Receive Date: 20201001
  Receipt Date: 20201001
  Transmission Date: 20210114
  Serious: No
  Sender: FDA-Public Use
  Company Number: None

PATIENT
  Age: 66 Year
  Sex: Male

DRUGS (1)
  1. NETARSUDIL (NETARSUDIL 0.02% SOLN, OPH) [Suspect]
     Active Substance: NETARSUDIL
     Indication: GLAUCOMA
     Route: 047
     Dates: start: 20200129, end: 20200917

REACTIONS (2)
  - Lacrimation increased [None]
  - Eye irritation [None]

NARRATIVE: CASE EVENT DATE: 20200917
